FAERS Safety Report 21358106 (Version 1)
Quarter: 2022Q3

REPORT INFORMATION
  Report Type: Spontaneous
  Country: US (occurrence: None)
  Receive Date: 20220921
  Receipt Date: 20220921
  Transmission Date: 20221027
  Serious: Yes (Other)
  Sender: FDA-Public Use
  Company Number: US-ADIENNEP-2022AD000626

PATIENT
  Age: 8 Year
  Sex: Male

DRUGS (3)
  1. THIOTEPA [Suspect]
     Active Substance: THIOTEPA
     Indication: Autologous haematopoietic stem cell transplant
     Dosage: SINGLE CYCLE ()
  2. CARBOPLATIN [Suspect]
     Active Substance: CARBOPLATIN
     Indication: Autologous haematopoietic stem cell transplant
     Dosage: SINGLE CYCLE ()
  3. ETOPOSIDE [Suspect]
     Active Substance: ETOPOSIDE
     Indication: Autologous haematopoietic stem cell transplant
     Dosage: SINGLE CYCLE ()

REACTIONS (4)
  - Clostridium difficile colitis [Unknown]
  - Electrolyte imbalance [Unknown]
  - Feeding disorder [Unknown]
  - Engraftment syndrome [Unknown]
